FAERS Safety Report 5648246-9 (Version None)
Quarter: 2008Q1

REPORT INFORMATION
  Report Type: 
  Country: None (occurrence: None)
  Receive Date: 20080304
  Receipt Date: 20080229
  Transmission Date: 20080703
  Serious: Yes (Hospitalization)
  Sender: FDA-Public Use
  Company Number: US-BRISTOL-MYERS SQUIBB COMPANY-13232657

PATIENT
  Age: 60 Year
  Sex: Male

DRUGS (8)
  1. CISPLATIN [Suspect]
     Indication: METASTATIC GASTRIC CANCER
     Dosage: START DATE: 04NOV05 INTERRUPT: 20DEC05
     Route: 041
     Dates: start: 20051202, end: 20051202
  2. TS-1 [Suspect]
     Indication: METASTATIC GASTRIC CANCER
     Dosage: START DATE CYCLE 1: 04NOV05 INTERRUPT: 20DEC05
     Route: 048
     Dates: start: 20051202, end: 20051220
  3. IMODIUM [Concomitant]
     Indication: DIARRHOEA
     Route: 048
     Dates: start: 20051209
  4. CENTRUM [Concomitant]
  5. PROTONIX [Concomitant]
  6. EMEND [Concomitant]
  7. LOMOTIL [Concomitant]
     Indication: DIARRHOEA
     Dosage: 2DOSAGE FORM=2TABS
     Route: 048
     Dates: start: 20051219
  8. ZYRTEC [Concomitant]

REACTIONS (4)
  - DEHYDRATION [None]
  - DIARRHOEA [None]
  - FEBRILE NEUTROPENIA [None]
  - GASTROENTERITIS [None]
